FAERS Safety Report 11090162 (Version 1)
Quarter: 2015Q2

REPORT INFORMATION
  Report Type: Spontaneous
  Country: US (occurrence: US)
  Receive Date: 20150505
  Receipt Date: 20150505
  Transmission Date: 20150821
  Serious: Yes (Life-Threatening, Other)
  Sender: FDA-Public Use
  Company Number: US-AUROBINDO-AUR-APU-2015-03315

PATIENT

DRUGS (1)
  1. METFORMIN HYDROCHLORIDE TABLETS USP 1000 MG [Suspect]
     Active Substance: METFORMIN HYDROCHLORIDE
     Indication: PRODUCT USED FOR UNKNOWN INDICATION
     Dosage: 1000 MG, UNK
     Route: 065

REACTIONS (5)
  - Blood glucose increased [Recovering/Resolving]
  - Extrasystoles [Unknown]
  - Weight decreased [Unknown]
  - Product substitution issue [Recovering/Resolving]
  - Diabetes mellitus [Recovering/Resolving]
